FAERS Safety Report 9894604 (Version 1)
Quarter: 2014Q1

REPORT INFORMATION
  Report Type: Spontaneous
  Country: JP (occurrence: JP)
  Receive Date: 20140213
  Receipt Date: 20140213
  Transmission Date: 20141002
  Serious: Yes (Other)
  Sender: FDA-Public Use
  Company Number: PHHY2014JP016626

PATIENT
  Age: 28 Year
  Sex: Female

DRUGS (2)
  1. 5-FLUOROURACIL [Suspect]
     Dosage: 330 MG/M2, PER DAY
     Route: 042
  2. CISPLATIN [Suspect]
     Dosage: 6 MG/M2, PER DAY

REACTIONS (11)
  - Metabolic acidosis [Recovering/Resolving]
  - Wernicke^s encephalopathy [Unknown]
  - Dizziness [Unknown]
  - Nystagmus [Unknown]
  - Diplopia [Recovered/Resolved]
  - Ataxia [Unknown]
  - Confusional state [Recovered/Resolved]
  - Autophony [Unknown]
  - Deafness [Recovered/Resolved]
  - Hypotension [Recovering/Resolving]
  - Leukopenia [Recovered/Resolved]
